FAERS Safety Report 7478901-X (Version None)
Quarter: 2011Q2

REPORT INFORMATION
  Report Type: 
  Country: None (occurrence: None)
  Receive Date: 20110513
  Receipt Date: 20110511
  Transmission Date: 20111010
  Serious: Yes (Death)
  Sender: FDA-Public Use
  Company Number: CZ-ROCHE-776595

PATIENT
  Sex: Female

DRUGS (2)
  1. AVASTIN [Suspect]
     Dosage: MOST RECENT INFUSION 15 FEB 2011
     Route: 065
     Dates: start: 20100720
  2. PACLITAXEL [Suspect]
     Dosage: LAST DOSE PRIOR TO SAE 14 DEC 2010
     Route: 065
     Dates: start: 20100720, end: 20101214

REACTIONS (1)
  - DYSPNOEA [None]
